FAERS Safety Report 25172705 (Version 1)
Quarter: 2025Q2

REPORT INFORMATION
  Report Type: Spontaneous
  Country: US (occurrence: None)
  Receive Date: 20250407
  Receipt Date: 20250407
  Transmission Date: 20250717
  Serious: Yes (Hospitalization)
  Sender: FDA-CTU
  Company Number: None

PATIENT
  Age: 66 Year
  Sex: Female

DRUGS (4)
  1. FORTEO [Suspect]
     Active Substance: TERIPARATIDE
     Dosage: FREQUENCY : DAILY;?
     Route: 058
  2. CALCIUM [Suspect]
     Active Substance: CALCIUM
     Dates: start: 20250101, end: 20250328
  3. VITAMIN D [Suspect]
     Active Substance: VITAMIN D NOS
  4. FORTEO [Concomitant]
     Active Substance: TERIPARATIDE

REACTIONS (1)
  - Hypercalcaemia [None]

NARRATIVE: CASE EVENT DATE: 20250326
